FAERS Safety Report 5794658-2 (Version None)
Quarter: 2008Q2

REPORT INFORMATION
  Report Type: 
  Country: None (occurrence: None)
  Receive Date: 20080627
  Receipt Date: 20080627
  Transmission Date: 20081010
  Serious: No
  Sender: FDA-Public Use
  Company Number: None

PATIENT
  Age: 30 Year
  Weight: 96 kg

DRUGS (2)
  1. OPTIRAY 350 [Suspect]
     Indication: COMPUTERISED TOMOGRAM
     Dosage: 100 ML X1
  2. OPTIRAY 350 [Suspect]
     Indication: SCAN WITH CONTRAST
     Dosage: 100 ML X1

REACTIONS (2)
  - DYSPNOEA [None]
  - URTICARIA [None]
